FAERS Safety Report 9336012 (Version 1)
Quarter: 2013Q2

REPORT INFORMATION
  Report Type: Spontaneous
  Country: US (occurrence: US)
  Receive Date: 20130607
  Receipt Date: 20130607
  Transmission Date: 20140414
  Serious: No
  Sender: FDA-Public Use
  Company Number: US-009507513-1305USA016743

PATIENT
  Age: 23 Year
  Sex: Female

DRUGS (6)
  1. BETAMETHASONE DIPROPIONATE [Suspect]
     Indication: PREMATURE DELIVERY
  2. MAGNESIUM SULFATE [Concomitant]
  3. CEFAZOLIN [Concomitant]
  4. OXYTOCIN [Concomitant]
  5. PENICILLIN (UNSPECIFIED) [Concomitant]
  6. LEVOTHYROXINE SODIUM [Concomitant]
     Indication: HYPOTHYROIDISM

REACTIONS (1)
  - Exposure during pregnancy [Recovered/Resolved]
